FAERS Safety Report 7207673-9 (Version None)
Quarter: 2011Q1

REPORT INFORMATION
  Report Type: 
  Country: None (occurrence: None)
  Receive Date: 20110103
  Receipt Date: 20101222
  Transmission Date: 20110831
  Serious: Yes (Other)
  Sender: FDA-Public Use
  Company Number: US-PFIZER INC-2010177782

PATIENT
  Sex: Female
  Weight: 59.864 kg

DRUGS (5)
  1. LYRICA [Suspect]
     Indication: FIBROMYALGIA
     Dosage: 150 MG, 2X/DAY
     Route: 048
  2. PALIPERIDONE [Concomitant]
     Indication: DEPRESSION
     Dosage: 6 MG, 1X/DAY
     Route: 048
  3. XANAX [Concomitant]
     Indication: ANXIETY
     Dosage: UNK
     Dates: end: 20100101
  4. CYMBALTA [Concomitant]
     Indication: DEPRESSION
     Dosage: 60 MG, 1X/DAY
     Route: 048
  5. VALIUM [Concomitant]
     Indication: ANXIETY
     Dosage: UNK

REACTIONS (3)
  - VISION BLURRED [None]
  - MUSCULAR WEAKNESS [None]
  - FALL [None]
